FAERS Safety Report 25310996 (Version 1)
Quarter: 2025Q2

REPORT INFORMATION
  Report Type: Spontaneous
  Country: CN (occurrence: None)
  Receive Date: 20250514
  Receipt Date: 20250514
  Transmission Date: 20250717
  Serious: Yes (Life-Threatening, Hospitalization)
  Sender: CMP PHARMA
  Company Number: CN-CMPPHARMA-000504

PATIENT
  Age: 52 Year
  Sex: Female

DRUGS (1)
  1. NORLIQVA [Suspect]
     Active Substance: AMLODIPINE
     Indication: Product used for unknown indication
     Route: 048

REACTIONS (10)
  - Pulmonary hypertension [Unknown]
  - Toxicity to various agents [Recovered/Resolved]
  - Intentional overdose [Unknown]
  - Cardiac failure high output [Recovered/Resolved]
  - Liver injury [Recovered/Resolved]
  - Shock [Unknown]
  - Right ventricular dysfunction [Recovered/Resolved]
  - Tachypnoea [Unknown]
  - Anuria [Unknown]
  - Acute kidney injury [Recovered/Resolved]
